FAERS Safety Report 22400602 (Version 1)
Quarter: 2023Q2

REPORT INFORMATION
  Report Type: Spontaneous
  Country: US (occurrence: None)
  Receive Date: 20230601
  Receipt Date: 20230601
  Transmission Date: 20230721
  Serious: Yes (Disabling)
  Sender: FDA-Public Use
  Company Number: None

PATIENT
  Age: 76 Year
  Sex: Female
  Weight: 72.57 kg

DRUGS (9)
  1. LIDOCAINE HYDROCHLORIDE [Suspect]
     Active Substance: LIDOCAINE HYDROCHLORIDE
     Indication: Mouth injury
     Dosage: OTHER FREQUENCY : EVERY 4-6 HOURS;?
     Route: 048
     Dates: start: 2022, end: 202303
  2. DIPHENHYDRAMINE HYDROCHLORIDE\LIDOCAINE HYDROCHLORIDE\NYSTATIN [Suspect]
     Active Substance: DIPHENHYDRAMINE HYDROCHLORIDE\LIDOCAINE HYDROCHLORIDE\NYSTATIN
  3. BRIMONIDINE [Concomitant]
     Active Substance: BRIMONIDINE TARTRATE
  4. LATANOPROST [Concomitant]
     Active Substance: LATANOPROST
  5. LISINOPRIL [Concomitant]
     Active Substance: LISINOPRIL
  6. OCUVITE [Concomitant]
     Active Substance: VITAMINS
  7. ONE-A-DAY VITAMINS [Concomitant]
  8. OCUVITE [Concomitant]
     Active Substance: VITAMINS
  9. TOTAL BEETS [Concomitant]

REACTIONS (2)
  - Hypoaesthesia oral [None]
  - Paraesthesia oral [None]

NARRATIVE: CASE EVENT DATE: 20220811
